FAERS Safety Report 23150638 (Version 1)
Quarter: 2023Q4

REPORT INFORMATION
  Report Type: Report from Study
  Country: US (occurrence: US)
  Receive Date: 20231106
  Receipt Date: 20231106
  Transmission Date: 20240110
  Serious: Yes (Hospitalization)
  Sender: FDA-Public Use
  Company Number: US-ABBVIE-5477014

PATIENT
  Age: 35 Year
  Sex: Male

DRUGS (1)
  1. HUMIRA [Suspect]
     Active Substance: ADALIMUMAB
     Indication: Hidradenitis
     Dosage: CITRATRE FREE
     Dates: end: 20231010

REACTIONS (3)
  - Eye swelling [Unknown]
  - Ear infection [Recovering/Resolving]
  - Swelling face [Unknown]

NARRATIVE: CASE EVENT DATE: 20231010
